FAERS Safety Report 4763194-4 (Version None)
Quarter: 2005Q3

REPORT INFORMATION
  Report Type: 
  Country: None (occurrence: None)
  Receive Date: 20050902
  Receipt Date: 20050819
  Transmission Date: 20060218
  Serious: Yes (Death)
  Sender: FDA-Public Use
  Company Number: 203897

PATIENT
  Age: 52 Year
  Sex: Male

DRUGS (4)
  1. AVONEX [Suspect]
     Indication: MULTIPLE SCLEROSIS
     Dosage: 30 UG; QW, IM; 30 UG; QW; IM
     Route: 030
     Dates: start: 20031223, end: 20040201
  2. AVONEX [Suspect]
     Indication: MULTIPLE SCLEROSIS
     Dosage: 30 UG; QW, IM; 30 UG; QW; IM
     Route: 030
     Dates: start: 20040331
  3. PROVIGIL [Concomitant]
  4. ZANTAC [Concomitant]

REACTIONS (4)
  - DISEASE PROGRESSION [None]
  - INJECTION SITE PAIN [None]
  - MULTIPLE SCLEROSIS [None]
  - MYOCARDIAL INFARCTION [None]
